FAERS Safety Report 13128327 (Version 3)
Quarter: 2017Q4

REPORT INFORMATION
  Report Type: Spontaneous
  Country: US (occurrence: US)
  Receive Date: 20170118
  Receipt Date: 20171025
  Transmission Date: 20180320
  Serious: No
  Sender: FDA-Public Use
  Company Number: US-SHIRE-US201700437

PATIENT
  Age: 63 Year
  Sex: Male
  Weight: 99.77 kg

DRUGS (1)
  1. XIIDRA [Suspect]
     Active Substance: LIFITEGRAST
     Indication: DRY EYE
     Dosage: 1 GTT (BOTH EYES), 2X/DAY:BID
     Route: 047
     Dates: start: 20170103

REACTIONS (7)
  - Product quality issue [Unknown]
  - Product storage error [Not Recovered/Not Resolved]
  - Instillation site lacrimation [Not Recovered/Not Resolved]
  - Vision blurred [Unknown]
  - Visual impairment [Unknown]
  - Product use complaint [Unknown]
  - Instillation site reaction [Unknown]

NARRATIVE: CASE EVENT DATE: 201701
